FAERS Safety Report 19882924 (Version 3)
Quarter: 2022Q1

REPORT INFORMATION
  Report Type: Report from Study
  Country: US (occurrence: US)
  Receive Date: 20210925
  Receipt Date: 20220113
  Transmission Date: 20220423
  Serious: Yes (Other)
  Sender: FDA-Public Use
  Company Number: US-NOVARTISPH-NVSC2021US213528

PATIENT
  Sex: Male

DRUGS (1)
  1. ENTRESTO [Suspect]
     Active Substance: SACUBITRIL\VALSARTAN
     Indication: Cardiac failure
     Dosage: 200 MG, BID
     Route: 048
     Dates: start: 20210514

REACTIONS (5)
  - Atrial fibrillation [Recovered/Resolved]
  - Glycosylated haemoglobin increased [Unknown]
  - Weight decreased [Unknown]
  - Weight increased [Unknown]
  - Nasopharyngitis [Unknown]
